FAERS Safety Report 12519026 (Version 2)
Quarter: 2016Q3

REPORT INFORMATION
  Report Type: Report from Study
  Country: AR (occurrence: AR)
  Receive Date: 20160630
  Receipt Date: 20160718
  Transmission Date: 20161109
  Serious: Yes (Other)
  Sender: FDA-Public Use
  Company Number: PHHY2016AR089967

PATIENT
  Sex: Male

DRUGS (4)
  1. ASPIRIN. [Concomitant]
     Active Substance: ASPIRIN
     Indication: PRODUCT USED FOR UNKNOWN INDICATION
     Route: 065
  2. DOMPERIDONE [Concomitant]
     Active Substance: DOMPERIDONE
     Indication: APPETITE DISORDER
     Route: 065
  3. EXJADE [Suspect]
     Active Substance: DEFERASIROX
     Indication: CONGENITAL APLASTIC ANAEMIA
     Dosage: 1500 MG, QD
     Route: 065
     Dates: start: 200501, end: 201605
  4. OMEPRAZOLE. [Concomitant]
     Active Substance: OMEPRAZOLE
     Indication: PRODUCT USED FOR UNKNOWN INDICATION
     Route: 065

REACTIONS (10)
  - Pyrexia [Recovered/Resolved]
  - Influenza [Recovered/Resolved]
  - Hepatitis A [Recovered/Resolved]
  - Hepatitis B [Recovered/Resolved]
  - Osteonecrosis [Recovered/Resolved]
  - Depressed mood [Recovered/Resolved]
  - Cardiac siderosis [Recovered/Resolved]
  - Platelet count decreased [Recovered/Resolved]
  - Dengue fever [Recovered/Resolved]
  - Haematocrit decreased [Recovered/Resolved]

NARRATIVE: CASE EVENT DATE: 2009
